FAERS Safety Report 7968784-3 (Version None)
Quarter: 2011Q4

REPORT INFORMATION
  Report Type: 
  Country: None (occurrence: None)
  Receive Date: 20111209
  Receipt Date: 20111129
  Transmission Date: 20120403
  Serious: Yes (Hospitalization, Other)
  Sender: FDA-Public Use
  Company Number: TW-ABBOTT-11P-153-0714053-00

PATIENT
  Sex: Female
  Weight: 51.5 kg

DRUGS (8)
  1. METHYLPREDNISOLONE [Concomitant]
     Indication: PRODUCT USED FOR UNKNOWN INDICATION
  2. METISONE [Concomitant]
     Indication: PRODUCT USED FOR UNKNOWN INDICATION
  3. METHOTREXATE [Concomitant]
     Indication: PRODUCT USED FOR UNKNOWN INDICATION
  4. CALCIUM CITRATE [Concomitant]
     Indication: PRODUCT USED FOR UNKNOWN INDICATION
  5. LEDERSCON [Concomitant]
     Indication: PRODUCT USED FOR UNKNOWN INDICATION
  6. MELOXICAM [Concomitant]
     Indication: PRODUCT USED FOR UNKNOWN INDICATION
  7. HUMIRA [Suspect]
     Indication: RHEUMATOID ARTHRITIS
     Dates: end: 20110215
  8. FOLIC ACID [Concomitant]
     Indication: PRODUCT USED FOR UNKNOWN INDICATION

REACTIONS (27)
  - STAPHYLOCOCCAL INFECTION [None]
  - HYPOAESTHESIA [None]
  - CONSTIPATION [None]
  - OSTEOMYELITIS [None]
  - SEPSIS [None]
  - PSOAS ABSCESS [None]
  - MUSCULAR WEAKNESS [None]
  - AGITATION [None]
  - ABDOMINAL DISTENSION [None]
  - EXTRADURAL ABSCESS [None]
  - OXYGEN SATURATION DECREASED [None]
  - PYREXIA [None]
  - GAIT DISTURBANCE [None]
  - URINE OUTPUT DECREASED [None]
  - BACK PAIN [None]
  - ASTHENIA [None]
  - DYSPNOEA [None]
  - LEUKOCYTOSIS [None]
  - RESPIRATORY FAILURE [None]
  - BONE MARROW OEDEMA [None]
  - INTERVERTEBRAL DISC COMPRESSION [None]
  - PAIN IN EXTREMITY [None]
  - BODY HEIGHT DECREASED [None]
  - SOFT TISSUE MASS [None]
  - CELLULITIS [None]
  - PNEUMONIA [None]
  - ILEUS [None]
